FAERS Safety Report 19989251 (Version 2)
Quarter: 2021Q4

REPORT INFORMATION
  Report Type: Spontaneous
  Country: IT (occurrence: IT)
  Receive Date: 20211025
  Receipt Date: 20211105
  Transmission Date: 20220303
  Serious: Yes (Other)
  Sender: FDA-Public Use
  Company Number: IT-AUROBINDO-AUR-APL-2021-043001

PATIENT
  Age: 36 Year
  Sex: Male

DRUGS (1)
  1. ZOLPIDEM [Suspect]
     Active Substance: ZOLPIDEM TARTRATE
     Indication: Antisocial personality disorder
     Dosage: 240 MILLIGRAM, ONCE A DAY
     Route: 048

REACTIONS (8)
  - Alcohol poisoning [Unknown]
  - Euphoric mood [Unknown]
  - Logorrhoea [Unknown]
  - Disinhibition [Unknown]
  - Drug abuse [Unknown]
  - Intentional product misuse [Unknown]
  - Drug dependence [Unknown]
  - Aggression [Unknown]
